FAERS Safety Report 19731965 (Version 4)
Quarter: 2024Q3

REPORT INFORMATION
  Report Type: Report from Study
  Country: FR (occurrence: FR)
  Receive Date: 20210820
  Receipt Date: 20240822
  Transmission Date: 20241017
  Serious: Yes (Hospitalization, Other)
  Sender: TAKEDA
  Company Number: FR-TAKEDA-2021TUS051577

PATIENT
  Age: 72 Year
  Sex: Male

DRUGS (12)
  1. TEDUGLUTIDE [Suspect]
     Active Substance: TEDUGLUTIDE
     Indication: Short-bowel syndrome
     Dosage: 3.200 MILLIGRAM, 1/WEEK
     Route: 042
     Dates: start: 20160413, end: 20170524
  2. TEDUGLUTIDE [Suspect]
     Active Substance: TEDUGLUTIDE
     Indication: Short-bowel syndrome
     Dosage: 3.200 MILLIGRAM, 1/WEEK
     Route: 042
     Dates: start: 20160413, end: 20170524
  3. TEDUGLUTIDE [Suspect]
     Active Substance: TEDUGLUTIDE
     Indication: Short-bowel syndrome
     Dosage: 3.200 MILLIGRAM, 1/WEEK
     Route: 042
     Dates: start: 20160413, end: 20170524
  4. TEDUGLUTIDE [Suspect]
     Active Substance: TEDUGLUTIDE
     Indication: Short-bowel syndrome
     Dosage: 3.200 MILLIGRAM, 1/WEEK
     Route: 042
     Dates: start: 20160413, end: 20170524
  5. TEDUGLUTIDE [Suspect]
     Active Substance: TEDUGLUTIDE
     Dosage: 1.600 MILLIGRAM
     Route: 042
     Dates: start: 20170525, end: 202101
  6. TEDUGLUTIDE [Suspect]
     Active Substance: TEDUGLUTIDE
     Dosage: 1.600 MILLIGRAM
     Route: 042
     Dates: start: 20170525, end: 202101
  7. TEDUGLUTIDE [Suspect]
     Active Substance: TEDUGLUTIDE
     Dosage: 1.600 MILLIGRAM
     Route: 042
     Dates: start: 20170525, end: 202101
  8. TEDUGLUTIDE [Suspect]
     Active Substance: TEDUGLUTIDE
     Dosage: 1.600 MILLIGRAM
     Route: 042
     Dates: start: 20170525, end: 202101
  9. POTASSIUM CHLORIDE [Concomitant]
     Active Substance: POTASSIUM CHLORIDE
     Indication: Hypokalaemia
     Dosage: 2.00 DOSAGE FORM, QD
     Route: 048
     Dates: start: 20190110, end: 20190117
  10. AUGMENTIN [Concomitant]
     Active Substance: AMOXICILLIN\CLAVULANATE POTASSIUM
     Indication: Wound
     Dosage: 1.00 DOSAGE FORM, TID
     Route: 048
     Dates: start: 20201130, end: 20201207
  11. ENOXAPARIN SODIUM [Concomitant]
     Active Substance: ENOXAPARIN SODIUM
     Indication: Prophylaxis
     Dosage: 6000 INTERNATIONAL UNIT, QD
     Route: 058
     Dates: start: 20181009
  12. WARFARIN [Concomitant]
     Active Substance: WARFARIN
     Indication: Prophylaxis
     Dosage: 3.00 MILLIGRAM, QD
     Route: 048
     Dates: end: 20181009

REACTIONS (2)
  - Haematuria [Recovered/Resolved]
  - Nephrolithiasis [Not Recovered/Not Resolved]

NARRATIVE: CASE EVENT DATE: 20191017
